FAERS Safety Report 5344965-2 (Version None)
Quarter: 2007Q2

REPORT INFORMATION
  Report Type: 
  Country: None (occurrence: None)
  Receive Date: 20070605
  Receipt Date: 20070601
  Transmission Date: 20071010
  Serious: Yes (Death, Life-Threatening)
  Sender: FDA-Public Use
  Company Number: PHBS2007JP09117

PATIENT
  Age: 41 Year
  Sex: Female

DRUGS (4)
  1. DRUG THERAPY NOS [Concomitant]
     Indication: RENAL TRANSPLANT
     Dosage: 16 MG/D
     Route: 048
     Dates: start: 20061128
  2. CELLCEPT [Suspect]
     Indication: RENAL TRANSPLANT
     Dosage: 1 G/D
     Route: 048
     Dates: start: 20061128, end: 20070525
  3. PROGRAF [Suspect]
     Indication: RENAL TRANSPLANT
     Route: 048
     Dates: start: 20061128, end: 20070501
  4. SIMULECT [Suspect]
     Indication: RENAL TRANSPLANT
     Route: 042

REACTIONS (2)
  - DEATH [None]
  - LYMPHOMA [None]
